FAERS Safety Report 4757269-3 (Version None)
Quarter: 2005Q3

REPORT INFORMATION
  Report Type: 
  Country: None (occurrence: None)
  Receive Date: 20050829
  Receipt Date: 20050819
  Transmission Date: 20060218
  Serious: Yes (Death, Hospitalization, Other)
  Sender: FDA-Public Use
  Company Number: 2004003722

PATIENT
  Sex: Male

DRUGS (1)
  1. ZOLOFT [Suspect]
     Indication: ILL-DEFINED DISORDER
     Dates: end: 20040101

REACTIONS (5)
  - CARDIAC FAILURE [None]
  - HYPONATRAEMIA [None]
  - LYMPHOMA [None]
  - MULTI-ORGAN DISORDER [None]
  - RENAL FAILURE [None]
